FAERS Safety Report 6401590-X (Version None)
Quarter: 2009Q4

REPORT INFORMATION
  Report Type: 
  Country: None (occurrence: None)
  Receive Date: 20091009
  Receipt Date: 20091009
  Transmission Date: 20100525
  Serious: Yes (Hospitalization)
  Sender: FDA-Public Use
  Company Number: None

PATIENT
  Sex: Female
  Weight: 27.4 kg

DRUGS (2)
  1. METHYLPREDNISOLONE [Suspect]
     Indication: DERMATOMYOSITIS
     Dosage: 720 -750 MG X15 IV BOLUS
     Route: 040
     Dates: start: 20080315, end: 20080708
  2. PREDNISONE [Suspect]
     Dosage: 60 MG DAILY PO
     Route: 048
     Dates: start: 20080318, end: 20090421

REACTIONS (4)
  - BODY MASS INDEX INCREASED [None]
  - CATARACT [None]
  - CUSHINGOID [None]
  - WEIGHT INCREASED [None]
